FAERS Safety Report 4976895-X (Version None)
Quarter: 2006Q2

REPORT INFORMATION
  Report Type: 
  Country: None (occurrence: None)
  Receive Date: 20060413
  Receipt Date: 20060403
  Transmission Date: 20061013
  Serious: Yes (Hospitalization, Other)
  Sender: FDA-Public Use
  Company Number: 2006047101

PATIENT
  Age: 66 Year
  Sex: Female
  Weight: 63.5036 kg

DRUGS (7)
  1. NORVASC [Suspect]
     Indication: HYPERTENSION
  2. LIPITOR [Suspect]
     Indication: BLOOD CHOLESTEROL INCREASED
     Dosage: 40 MG (40 MG, 1 IN 1 D), ORAL
     Route: 048
     Dates: end: 20020101
  3. ZOLOFT [Suspect]
     Indication: ILL-DEFINED DISORDER
  4. VALTREX [Suspect]
     Indication: HERPES ZOSTER
     Dates: start: 20060301, end: 20060301
  5. ATENOLOL [Concomitant]
  6. VALIUM [Concomitant]
  7. ASPIRIN [Concomitant]

REACTIONS (7)
  - ABASIA [None]
  - CHEST PAIN [None]
  - HERPES ZOSTER [None]
  - HYPERTENSION [None]
  - MYALGIA [None]
  - NEURALGIA [None]
  - OESOPHAGITIS [None]
